FAERS Safety Report 23271158 (Version 1)
Quarter: 2023Q4

REPORT INFORMATION
  Report Type: Report from Study
  Country: US (occurrence: US)
  Receive Date: 20231207
  Receipt Date: 20231207
  Transmission Date: 20240110
  Serious: No
  Sender: FDA-Public Use
  Company Number: US-ALXN-A202209766

PATIENT
  Sex: Female

DRUGS (1)
  1. SOLIRIS [Suspect]
     Active Substance: ECULIZUMAB
     Indication: Neuromyelitis optica spectrum disorder
     Dosage: UNK
     Route: 065
     Dates: start: 202009

REACTIONS (8)
  - Gait disturbance [Not Recovered/Not Resolved]
  - Lacrimation increased [Recovering/Resolving]
  - Pain [Recovering/Resolving]
  - Peroneal nerve palsy [Recovering/Resolving]
  - Balance disorder [Recovering/Resolving]
  - Influenza like illness [Recovering/Resolving]
  - Rhinorrhoea [Recovering/Resolving]
  - Asthenia [Recovering/Resolving]
